FAERS Safety Report 8716318 (Version 2)
Quarter: 2013Q4

REPORT INFORMATION
  Report Type: Spontaneous
  Country: US (occurrence: US)
  Receive Date: 20120810
  Receipt Date: 20131101
  Transmission Date: 20140711
  Serious: No
  Sender: FDA-Public Use
  Company Number: US-009507513-1207USA005948

PATIENT
  Age: 70 Year
  Sex: Male

DRUGS (7)
  1. DULERA [Suspect]
     Indication: PULMONARY FIBROSIS
     Dosage: 2 DF, BID
     Dates: start: 20120710
  2. SPIRIVA [Suspect]
     Indication: PULMONARY FIBROSIS
  3. OXYGEN [Concomitant]
  4. METOPROLOL [Concomitant]
  5. LISINOPRIL [Concomitant]
  6. BENZONATATE [Concomitant]
  7. ASPIRIN [Concomitant]

REACTIONS (3)
  - Drug ineffective for unapproved indication [Unknown]
  - Off label use [Unknown]
  - Oxygen saturation decreased [Not Recovered/Not Resolved]
